FAERS Safety Report 7636290-1 (Version None)
Quarter: 2011Q3

REPORT INFORMATION
  Report Type: 
  Country: None (occurrence: None)
  Receive Date: 20110726
  Receipt Date: 20081118
  Transmission Date: 20111222
  Serious: Yes (Death, Hospitalization)
  Sender: FDA-Public Use
  Company Number: US-GLAXOSMITHKLINE-A0758012A

PATIENT
  Age: 69 Year
  Sex: Male

DRUGS (7)
  1. UNKNOWN MEDICATION [Concomitant]
  2. ARICEPT [Concomitant]
  3. LOPRESSOR [Concomitant]
  4. FLU VACCINE [Suspect]
     Indication: PROPHYLAXIS
     Route: 065
     Dates: start: 20081108, end: 20081108
  5. CEFTIN [Suspect]
     Indication: LUNG INFILTRATION
     Dosage: 500MG TWICE PER DAY
     Route: 048
     Dates: start: 20081220
  6. VACCINE [Concomitant]
  7. NAMENDA [Concomitant]

REACTIONS (16)
  - FALL [None]
  - HAEMATEMESIS [None]
  - LUNG INFILTRATION [None]
  - GASTROINTESTINAL HAEMORRHAGE [None]
  - HEAD INJURY [None]
  - INTERNATIONAL NORMALISED RATIO INCREASED [None]
  - HAEMATOCHEZIA [None]
  - ABASIA [None]
  - HAEMOPTYSIS [None]
  - COAGULOPATHY [None]
  - DECREASED APPETITE [None]
  - MOUTH HAEMORRHAGE [None]
  - OVERDOSE [None]
  - ASTHENIA [None]
  - PROTHROMBIN TIME PROLONGED [None]
  - THROMBOSIS [None]
